FAERS Safety Report 9970913 (Version 2)
Quarter: 2014Q1

REPORT INFORMATION
  Report Type: Report from Study
  Country: US (occurrence: US)
  Receive Date: 20140306
  Receipt Date: 20140306
  Transmission Date: 20141002
  Serious: Yes (Hospitalization)
  Sender: FDA-Public Use
  Company Number: US-ABBVIE-13P-163-1039536-00

PATIENT
  Age: 32 Year
  Sex: 0
  Weight: 52.21 kg

DRUGS (18)
  1. HUMIRA [Suspect]
     Indication: CROHN^S DISEASE
     Dates: start: 20080109, end: 20080929
  2. PRENATAL VITAMINS [Concomitant]
     Indication: PRODUCT USED FOR UNKNOWN INDICATION
     Route: 048
     Dates: start: 20080109, end: 20080929
  3. CALCIUM [Concomitant]
     Indication: PRODUCT USED FOR UNKNOWN INDICATION
     Dosage: 1-2 PILLS DAILY
     Route: 048
     Dates: start: 20080109, end: 20080827
  4. CAFFEINE [Concomitant]
     Indication: PRODUCT USED FOR UNKNOWN INDICATION
     Dosage: 2-3 TIMES PER WEEK
     Route: 048
     Dates: start: 20080109, end: 20080630
  5. CAFFEINE [Concomitant]
     Dosage: 1-2 TIMES PER WEEK
     Route: 048
     Dates: start: 20080701, end: 20080929
  6. PREDNISONE [Concomitant]
     Indication: CROHN^S DISEASE
     Route: 048
     Dates: start: 20080328, end: 20080406
  7. PREDNISONE [Concomitant]
     Route: 048
     Dates: start: 20080407, end: 20080413
  8. PREDNISONE [Concomitant]
     Route: 048
     Dates: start: 20080414, end: 20080420
  9. PREDNISONE [Concomitant]
     Route: 048
     Dates: start: 20080421, end: 20080427
  10. PREDNISONE [Concomitant]
     Route: 048
     Dates: start: 20080428, end: 20080504
  11. PREDNISONE [Concomitant]
     Route: 048
     Dates: start: 20080505, end: 20080522
  12. PREDNISONE [Concomitant]
     Route: 048
     Dates: start: 20080523, end: 20080530
  13. PREDNISONE [Concomitant]
     Route: 048
     Dates: start: 20080701, end: 20080731
  14. PREDNISONE [Concomitant]
     Route: 048
     Dates: start: 20080801, end: 20080929
  15. NEXIUM [Concomitant]
     Indication: GASTROOESOPHAGEAL REFLUX DISEASE
     Route: 048
     Dates: start: 20080109, end: 20080915
  16. NEXIUM [Concomitant]
     Indication: DYSPEPSIA
     Route: 048
     Dates: start: 20080917, end: 20080929
  17. ENTOCORT EC [Concomitant]
     Indication: CROHN^S DISEASE
     Route: 048
     Dates: start: 20080109, end: 20080327
  18. TUMS [Concomitant]
     Indication: DYSPEPSIA
     Dosage: 7 PILLS DAILY
     Route: 048
     Dates: start: 20080916, end: 20080917

REACTIONS (1)
  - Crohn^s disease [Recovered/Resolved]
